FAERS Safety Report 8171070-2 (Version None)
Quarter: 2012Q1

REPORT INFORMATION
  Report Type: 
  Country: None (occurrence: None)
  Receive Date: 20120228
  Receipt Date: 20120227
  Transmission Date: 20120608
  Serious: Yes (Other)
  Sender: FDA-Public Use
  Company Number: PHFR2012IE001123

PATIENT
  Sex: Male

DRUGS (8)
  1. LAMOTRIGINE [Concomitant]
     Dosage: 300 MG, UNK
     Route: 048
  2. CLOZARIL [Suspect]
     Indication: PSYCHOTIC DISORDER
     Dosage: 375 MG, UNK
     Route: 048
     Dates: start: 20070301
  3. ALFUZOSIN HCL [Concomitant]
     Indication: BLADDER OBSTRUCTION
     Dosage: 10 MG, UNK
     Route: 048
  4. OLANZAPINE [Concomitant]
     Indication: PSYCHOTIC DISORDER
     Dosage: 20 MG, QD
     Route: 048
  5. SOLIFENACIN SUCCINATE [Concomitant]
     Indication: URGE INCONTINENCE
     Dosage: 5 MG, DAILY
     Route: 048
  6. ATENOLOL [Concomitant]
     Indication: HYPERTENSION
     Dosage: 100 MG, QD
     Route: 048
  7. AMLODIPINE [Concomitant]
     Indication: HYPERTENSION
     Dosage: 10 MG, QD
     Route: 048
  8. LANSOPRAZOLE [Concomitant]
     Dosage: 15 MG, UNK
     Route: 048

REACTIONS (5)
  - ERYTHEMA [None]
  - EXTERNAL EAR INFLAMMATION [None]
  - BODY TEMPERATURE INCREASED [None]
  - OTITIS EXTERNA [None]
  - TENDERNESS [None]
